FAERS Safety Report 15867964 (Version 7)
Quarter: 2024Q3

REPORT INFORMATION
  Report Type: Spontaneous
  Country: GR (occurrence: GR)
  Receive Date: 20190125
  Receipt Date: 20240912
  Transmission Date: 20241017
  Serious: Yes (Hospitalization, Other)
  Sender: MYLAN
  Company Number: None

PATIENT
  Age: 22 Year
  Sex: Male

DRUGS (10)
  1. VANCOMYCIN [Suspect]
     Active Substance: VANCOMYCIN
     Indication: Clostridium difficile infection
     Dosage: 500 MILLIGRAM, QID
     Route: 048
  2. VANCOMYCIN [Suspect]
     Active Substance: VANCOMYCIN
     Dosage: 4 DOSAGE FORM, QD (500 UNK, 4X/DAY)
     Route: 048
  3. VANCOMYCIN [Suspect]
     Active Substance: VANCOMYCIN
     Dosage: Q6H (500 UNK, 4X/DAY)
     Route: 048
  4. METRONIDAZOLE [Suspect]
     Active Substance: METRONIDAZOLE
     Indication: Clostridium difficile infection
     Dosage: 500 MILLIGRAM, TID
     Route: 042
  5. METRONIDAZOLE [Suspect]
     Active Substance: METRONIDAZOLE
     Dosage: 3 DOSAGE FORM, QD (500 UNK, 3X/DAY)
     Route: 042
  6. METRONIDAZOLE [Suspect]
     Active Substance: METRONIDAZOLE
     Dosage: Q8H (500 UNK, 3X/DAY)
     Route: 042
  7. PREDNISOLONE [Suspect]
     Active Substance: PREDNISOLONE
     Indication: Colitis
     Dosage: 25 MILLIGRAM
     Route: 048
  8. PREDNISOLONE [Suspect]
     Active Substance: PREDNISOLONE
     Indication: Colitis ulcerative
  9. INFLIXIMAB [Concomitant]
     Active Substance: INFLIXIMAB
     Indication: Colitis
     Dosage: 5 MILLIGRAM/KILOGRAM
     Route: 065
  10. INFLIXIMAB [Concomitant]
     Active Substance: INFLIXIMAB
     Indication: Colitis ulcerative

REACTIONS (9)
  - Condition aggravated [Recovering/Resolving]
  - Clostridium difficile infection [Recovering/Resolving]
  - Hypotension [Recovering/Resolving]
  - Haematochezia [Recovering/Resolving]
  - Pyrexia [Recovering/Resolving]
  - Cytomegalovirus infection [Unknown]
  - Bacteraemia [Unknown]
  - Enterococcal infection [Unknown]
  - Drug ineffective [Unknown]
